FAERS Safety Report 14278917 (Version 3)
Quarter: 2018Q1

REPORT INFORMATION
  Report Type: Report from Study
  Country: NL (occurrence: NL)
  Receive Date: 20171212
  Receipt Date: 20180102
  Transmission Date: 20180508
  Serious: Yes (Death, Hospitalization)
  Sender: FDA-Public Use
  Company Number: NL-PFIZER INC-2017527729

PATIENT
  Age: 7 Decade
  Sex: Female
  Weight: 48 kg

DRUGS (14)
  1. RAPAMUNE [Suspect]
     Active Substance: SIROLIMUS
     Indication: CHONDROSARCOMA
     Dosage: 4 MG, DAILY
     Route: 048
     Dates: start: 20170905, end: 20170906
  2. DICLOFENAC [Concomitant]
     Active Substance: DICLOFENAC
     Indication: TUMOUR PAIN
     Dosage: UNK
     Dates: start: 20170901, end: 20171010
  3. PHENTANYL [Concomitant]
     Active Substance: FENTANYL
     Indication: TUMOUR PAIN
     Dosage: UNK
     Dates: start: 20170810
  4. RAPAMUNE [Suspect]
     Active Substance: SIROLIMUS
     Dosage: 4 MG, DAILY
     Route: 048
     Dates: start: 20171010, end: 20171010
  5. ENDOXAN [Suspect]
     Active Substance: CYCLOPHOSPHAMIDE
     Indication: CHONDROSARCOMA
     Dosage: 200 MG, DAILY
     Route: 048
     Dates: start: 20170905, end: 20170906
  6. METOCLOPRAMIDE. [Concomitant]
     Active Substance: METOCLOPRAMIDE
     Indication: VOMITING
     Dosage: UNK
     Dates: start: 20170906, end: 20171010
  7. METOPROLOL. [Concomitant]
     Active Substance: METOPROLOL
     Indication: HYPERTENSION
     Dosage: UNK
     Dates: start: 20170731
  8. PARACETAMOL [Concomitant]
     Active Substance: ACETAMINOPHEN
     Indication: TUMOUR PAIN
     Dosage: UNK
     Dates: start: 20170731
  9. ENDOXAN [Suspect]
     Active Substance: CYCLOPHOSPHAMIDE
     Dosage: 200 MG, DAILY
     Route: 048
     Dates: start: 20170914, end: 20170925
  10. METOCLOPRAMIDE. [Concomitant]
     Active Substance: METOCLOPRAMIDE
     Indication: NAUSEA
  11. PANTOPRAZOL [Concomitant]
     Active Substance: PANTOPRAZOLE SODIUM
     Indication: PROPHYLAXIS
     Dosage: UNK
     Dates: start: 20170731
  12. ENDOXAN [Suspect]
     Active Substance: CYCLOPHOSPHAMIDE
     Dosage: 200 MG, DAILY
     Route: 048
     Dates: start: 20171002, end: 20171008
  13. NADROPARIN [Concomitant]
     Active Substance: NADROPARIN
     Indication: EMBOLISM
     Dosage: UNK
     Dates: start: 20170907
  14. DESLORATADINE. [Concomitant]
     Active Substance: DESLORATADINE
     Indication: HYPERSENSITIVITY
     Dosage: UNK
     Dates: start: 20170731, end: 20171010

REACTIONS (3)
  - Febrile neutropenia [Unknown]
  - Death [Fatal]
  - Pneumonia [Unknown]

NARRATIVE: CASE EVENT DATE: 2017
